FAERS Safety Report 4754157-3 (Version None)
Quarter: 2005Q3

REPORT INFORMATION
  Report Type: 
  Country: None (occurrence: None)
  Receive Date: 20050826
  Receipt Date: 20020307
  Transmission Date: 20060218
  Serious: Yes (Other)
  Sender: FDA-Public Use
  Company Number: JP-ABBOTT-05P-087-0306463-00

PATIENT
  Age: 16 Year
  Sex: Female

DRUGS (3)
  1. MENDON [Suspect]
     Indication: DRUG USE FOR UNKNOWN INDICATION
     Route: 048
  2. ZONISAMIDE [Suspect]
     Indication: DRUG USE FOR UNKNOWN INDICATION
     Route: 048
  3. PHENYTOIN SODIUM CAP [Suspect]
     Indication: DRUG USE FOR UNKNOWN INDICATION
     Route: 048

REACTIONS (6)
  - DISCOMFORT [None]
  - GINGIVAL BLEEDING [None]
  - GINGIVAL HYPERTROPHY [None]
  - INFLAMMATION [None]
  - PAIN [None]
  - TOOTH DEPOSIT [None]
